FAERS Safety Report 9013899 (Version 1)
Quarter: 2013Q1

REPORT INFORMATION
  Report Type: Spontaneous
  Country: US (occurrence: US)
  Receive Date: 20130115
  Receipt Date: 20130115
  Transmission Date: 20140127
  Serious: Yes (Other)
  Sender: FDA-Public Use
  Company Number: US-009507513-1301USA003374

PATIENT
  Age: 37 Year
  Sex: Female

DRUGS (4)
  1. MONTELUKAST SODIUM [Suspect]
     Indication: ASTHMA
     Route: 048
  2. IPRATROPIUM BROMIDE [Suspect]
  3. XOLAIR [Suspect]
     Route: 058
  4. FLUTICASONE PROPIONATE (+) SALMETEROL XINAFOATE [Suspect]

REACTIONS (6)
  - Hemiparesis [Unknown]
  - Transient ischaemic attack [Unknown]
  - Sensory disturbance [Unknown]
  - Nervous system disorder [Unknown]
  - Headache [Unknown]
  - Dysaesthesia [Unknown]
